FAERS Safety Report 16094178 (Version 2)
Quarter: 2019Q2

REPORT INFORMATION
  Report Type: Spontaneous
  Country: FR (occurrence: FR)
  Receive Date: 20190320
  Receipt Date: 20190419
  Transmission Date: 20190711
  Serious: Yes (Hospitalization)
  Sender: FDA-Public Use
  Company Number: FR-AUROBINDO-AUR-APL-2019-014129

PATIENT

DRUGS (17)
  1. KETEK [Interacting]
     Active Substance: TELITHROMYCIN
     Indication: BRONCHITIS
     Dosage: UNK
     Route: 048
  2. KETEK [Interacting]
     Active Substance: TELITHROMYCIN
     Indication: HAEMOPTYSIS
  3. BUDESONIDE. [Concomitant]
     Active Substance: BUDESONIDE
     Indication: BRONCHITIS
     Dosage: UNK
     Route: 055
  4. PULMICORT TURBUHALER [Concomitant]
     Active Substance: BUDESONIDE
     Indication: BRONCHITIS
     Dosage: UNK
     Route: 055
  5. BRONCHATHIOL [Concomitant]
     Indication: BRONCHITIS
     Dosage: UNK
     Route: 065
  6. OGAST [Interacting]
     Active Substance: LANSOPRAZOLE
     Indication: PRODUCT USED FOR UNKNOWN INDICATION
     Dosage: 30 MILLIGRAM, ONCE A DAY
     Route: 048
  7. PENTOXIFYLLINE. [Suspect]
     Active Substance: PENTOXIFYLLINE
     Indication: PRODUCT USED FOR UNKNOWN INDICATION
     Dosage: 15 MILLIGRAM, ONCE A DAY
     Route: 048
  8. SOLU-MEDROL [Concomitant]
     Active Substance: METHYLPREDNISOLONE SODIUM SUCCINATE
     Indication: BRONCHITIS
     Dosage: UNK
     Route: 048
  9. CLARITHROMYCIN. [Suspect]
     Active Substance: CLARITHROMYCIN
     Indication: PRODUCT USED FOR UNKNOWN INDICATION
     Dosage: UNK, DOSE AS USED
     Route: 048
  10. FLUINDIONE [Interacting]
     Active Substance: FLUINDIONE
     Indication: ATRIAL FIBRILLATION
     Dosage: 15 MILLIGRAM, ONCE A DAY
     Route: 048
  11. PROZAC [Interacting]
     Active Substance: FLUOXETINE HYDROCHLORIDE
     Indication: PRODUCT USED FOR UNKNOWN INDICATION
     Dosage: 20 MILLIGRAM, ONCE A DAY
     Route: 048
     Dates: start: 200608, end: 200608
  12. PREVISCAN (FLUINDIONE) [Interacting]
     Active Substance: FLUINDIONE
     Indication: ATRIAL FIBRILLATION
     Dosage: 15 MILLIGRAM, ONCE A DAY
     Route: 048
  13. PREVISCAN (FLUINDIONE) [Interacting]
     Active Substance: FLUINDIONE
     Indication: TACHYARRHYTHMIA
  14. IPRATROPIUM BROMIDE\FENOTEROL HYDROBROMIDE [Concomitant]
     Active Substance: FENOTEROL HYDROBROMIDE\IPRATROPIUM BROMIDE
     Indication: BRONCHITIS
     Dosage: UNK
     Route: 055
  15. FLUINDIONE [Interacting]
     Active Substance: FLUINDIONE
     Indication: TACHYARRHYTHMIA
  16. DUOVENT [Concomitant]
     Active Substance: FENOTEROL HYDROBROMIDE
     Indication: BRONCHITIS
     Dosage: UNK
     Route: 055
  17. METHYLPREDNISOLONE. [Concomitant]
     Active Substance: METHYLPREDNISOLONE
     Indication: BRONCHITIS
     Dosage: UNK
     Route: 048

REACTIONS (6)
  - Haemoptysis [Recovered/Resolved]
  - Prothrombin level decreased [Recovered/Resolved]
  - International normalised ratio increased [Recovered/Resolved]
  - Bronchitis [Recovered/Resolved]
  - Overdose [Recovered/Resolved]
  - Drug interaction [Recovered/Resolved]

NARRATIVE: CASE EVENT DATE: 20060827
